FAERS Safety Report 4595353-8 (Version None)
Quarter: 2005Q1

REPORT INFORMATION
  Report Type: 
  Country: None (occurrence: None)
  Receive Date: 20050225
  Receipt Date: 20050225
  Transmission Date: 20050727
  Serious: Yes (Hospitalization)
  Sender: FDA-Public Use
  Company Number: None

PATIENT
  Age: 77 Year
  Sex: Male
  Weight: 76.5672 kg

DRUGS (10)
  1. CARBAMAZEPINE [Suspect]
     Indication: CONVULSION
     Dosage: 2 TABS    BID     ORAL
     Route: 048
     Dates: start: 20050202, end: 20050222
  2. PHENYTOIN [Suspect]
     Indication: CONVULSION
     Dosage: 3 CAPS    HS    ORAL
     Route: 048
     Dates: start: 20040916, end: 20050222
  3. ATENOLOL [Concomitant]
  4. SALMETEROL [Concomitant]
  5. IPRATROPIUM BROMIDE [Concomitant]
  6. ALBUTEROL [Concomitant]
  7. COMBIVENT [Concomitant]
  8. CAPSAICIN CREAM [Concomitant]
  9. IBUPROFEN [Concomitant]
  10. OMEPRAZOLE [Concomitant]

REACTIONS (16)
  - ABDOMINAL PAIN UPPER [None]
  - AGEUSIA [None]
  - ALANINE AMINOTRANSFERASE INCREASED [None]
  - ASPARTATE AMINOTRANSFERASE INCREASED [None]
  - BLOOD ALKALINE PHOSPHATASE INCREASED [None]
  - CHEST WALL PAIN [None]
  - COUGH [None]
  - DECREASED APPETITE [None]
  - DRUG ERUPTION [None]
  - FATIGUE [None]
  - GRAND MAL CONVULSION [None]
  - HYPONATRAEMIA [None]
  - INAPPROPRIATE ANTIDIURETIC HORMONE SECRETION [None]
  - MALAISE [None]
  - RASH GENERALISED [None]
  - TONGUE DISORDER [None]
